FAERS Safety Report 9881446 (Version 1)
Quarter: 2014Q1

REPORT INFORMATION
  Report Type: Spontaneous
  Country: US (occurrence: None)
  Receive Date: 20140205
  Receipt Date: 20140205
  Transmission Date: 20141002
  Serious: Yes (Death)
  Sender: FDA-Public Use
  Company Number: IMP_07138_2014

PATIENT
  Age: 25 Year
  Sex: Male

DRUGS (4)
  1. BUPROPION [Suspect]
     Dosage: DF ORAL
     Route: 048
  2. DIPHENHYDRAMINE [Suspect]
     Dosage: DF
  3. FLUOXETINE [Suspect]
     Dosage: DF
  4. ETHANOL [Suspect]
     Dosage: DF

REACTIONS (2)
  - Toxicity to various agents [None]
  - Wrong drug administered [None]
